FAERS Safety Report 15886534 (Version 2)
Quarter: 2019Q1

REPORT INFORMATION
  Report Type: Report from Study
  Country: US (occurrence: US)
  Receive Date: 20190129
  Receipt Date: 20190313
  Transmission Date: 20190417
  Serious: Yes (Death)
  Sender: FDA-Public Use
  Company Number: US-ACTELION-A-NJ2017-154397

PATIENT
  Age: 84 Year
  Sex: Female
  Weight: 74.83 kg

DRUGS (2)
  1. OPSUMIT [Suspect]
     Active Substance: MACITENTAN
     Indication: PULMONARY ARTERIAL HYPERTENSION
     Dosage: 10 MG, QD
     Route: 048
     Dates: end: 201901
  2. SILDENAFIL. [Concomitant]
     Active Substance: SILDENAFIL

REACTIONS (13)
  - Respiratory failure [Fatal]
  - Endometrial cancer [Fatal]
  - Hospice care [Unknown]
  - Dementia [Unknown]
  - Hypersensitivity [Unknown]
  - Dyspnoea [Unknown]
  - Dry skin [Unknown]
  - Decubitus ulcer [Recovered/Resolved]
  - Pruritus [Unknown]
  - Blood glucose increased [Unknown]
  - Renal failure [Fatal]
  - Asthenia [Unknown]
  - Cough [Unknown]

NARRATIVE: CASE EVENT DATE: 20190118
